FAERS Safety Report 9164905 (Version 1)
Quarter: 2013Q1

REPORT INFORMATION
  Report Type: Spontaneous
  Country: US (occurrence: None)
  Receive Date: 20130313
  Receipt Date: 20130313
  Transmission Date: 20140127
  Serious: No
  Sender: FDA-Public Use
  Company Number: None

PATIENT
  Age: 52 Year
  Sex: Female
  Weight: 63.5 kg

DRUGS (4)
  1. DOXYCYCLINE HYCLATE [Suspect]
     Indication: TOOTH EXTRACTION
     Dosage: 100 MG BID PO
     Route: 048
     Dates: start: 20130218, end: 20130220
  2. DOXYCYCLINE HYCLATE [Suspect]
     Indication: PROPHYLAXIS
     Dosage: 100 MG BID PO
     Route: 048
     Dates: start: 20130218, end: 20130220
  3. SYNTHROID [Concomitant]
  4. INSULIN [Concomitant]

REACTIONS (6)
  - Arthritis [None]
  - Arthralgia [None]
  - Trigger finger [None]
  - Disease recurrence [None]
  - Arthropathy [None]
  - Joint swelling [None]
